FAERS Safety Report 9492068 (Version 2)
Quarter: 2013Q3

REPORT INFORMATION
  Report Type: Spontaneous
  Country: JP (occurrence: JP)
  Receive Date: 20130830
  Receipt Date: 20130904
  Transmission Date: 20140515
  Serious: Yes (Hospitalization, Other)
  Sender: FDA-Public Use
  Company Number: JP-JHP PHARMACEUTICALS, LLC-JHP201300523

PATIENT
  Age: 80 Year
  Sex: Male

DRUGS (1)
  1. DANTRIUM [Suspect]
     Dosage: 25 MG, BID
     Route: 048

REACTIONS (2)
  - Pneumonia [Unknown]
  - Dysphagia [Unknown]
